FAERS Safety Report 8901594 (Version 1)
Quarter: 2012Q4

REPORT INFORMATION
  Report Type: Spontaneous
  Country: US (occurrence: None)
  Receive Date: 20121108
  Receipt Date: 20121108
  Transmission Date: 20130627
  Serious: Yes (Other)
  Sender: FDA-Public Use
  Company Number: None

PATIENT
  Age: 56 Year
  Sex: Female
  Weight: 66.68 kg

DRUGS (1)
  1. POTASSIUM CITRATE 1080 MG -10MEQ- UPSHER-SMITH [Suspect]
     Dosage: 1   3x/day   po
     Route: 048
     Dates: start: 20121015, end: 20121028

REACTIONS (4)
  - Neck pain [None]
  - Musculoskeletal pain [None]
  - Pain in extremity [None]
  - Gait disturbance [None]
